FAERS Safety Report 7447029-7 (Version None)
Quarter: 2011Q2

REPORT INFORMATION
  Report Type: 
  Country: None (occurrence: None)
  Receive Date: 20110429
  Receipt Date: 20110420
  Transmission Date: 20111010
  Serious: Yes (Hospitalization, Other)
  Sender: FDA-Public Use
  Company Number: CA-JNJFOC-20110307673

PATIENT
  Sex: Female
  Weight: 129.28 kg

DRUGS (3)
  1. STELARA [Suspect]
     Route: 058
     Dates: start: 20100707
  2. STELARA [Suspect]
     Route: 058
     Dates: start: 20100707
  3. STELARA [Suspect]
     Indication: PSORIASIS
     Route: 058
     Dates: start: 20100707

REACTIONS (1)
  - PSORIASIS [None]
